FAERS Safety Report 7989618-7 (Version None)
Quarter: 2011Q4

REPORT INFORMATION
  Report Type: 
  Country: None (occurrence: None)
  Receive Date: 20111219
  Receipt Date: 20111208
  Transmission Date: 20120403
  Serious: Yes (Hospitalization)
  Sender: FDA-Public Use
  Company Number: SE-SANOFI-AVENTIS-2011SA033929

PATIENT
  Age: 41 Year
  Sex: Female

DRUGS (10)
  1. PANOCOD [Concomitant]
  2. OXAZEPAM [Concomitant]
  3. SERTRALINE HYDROCHLORIDE [Concomitant]
     Indication: DEPRESSION
     Route: 065
     Dates: start: 20101223
  4. WARFARIN SODIUM [Concomitant]
     Route: 065
  5. ASPIRIN [Concomitant]
  6. ZOPICLON [Concomitant]
     Route: 065
  7. CARDIZEM [Concomitant]
     Indication: ATRIAL FIBRILLATION
     Route: 065
  8. MULTAQ [Suspect]
     Route: 065
     Dates: start: 20101201
  9. MULTAQ [Suspect]
     Indication: ATRIAL FIBRILLATION
     Route: 065
     Dates: start: 20100701, end: 20100901
  10. SERTRALINE HYDROCHLORIDE [Concomitant]
     Indication: ANXIETY
     Route: 065
     Dates: start: 20101223

REACTIONS (6)
  - PERICARDITIS [None]
  - FACE OEDEMA [None]
  - COUGH [None]
  - NASAL CONGESTION [None]
  - CHEST PAIN [None]
  - PYREXIA [None]
